FAERS Safety Report 5624704-8 (Version None)
Quarter: 2008Q1

REPORT INFORMATION
  Report Type: 
  Country: None (occurrence: None)
  Receive Date: 20080213
  Receipt Date: 20080204
  Transmission Date: 20080703
  Serious: Yes (Hospitalization)
  Sender: FDA-Public Use
  Company Number: B0507410A

PATIENT
  Age: 88 Year
  Sex: Female
  Weight: 45 kg

DRUGS (11)
  1. ARIXTRA [Suspect]
     Dosage: 7.5MG PER DAY
     Route: 058
     Dates: start: 20080103, end: 20080107
  2. HYDREA [Concomitant]
  3. AMIODARONE HCL [Concomitant]
  4. COUMADIN [Concomitant]
     Dates: end: 20080101
  5. DIFFU-K [Concomitant]
  6. PRAXILENE [Concomitant]
  7. XANAX [Concomitant]
  8. TEMESTA [Concomitant]
  9. INIPOMP [Concomitant]
  10. LASILIX [Concomitant]
  11. NITRODERM [Concomitant]

REACTIONS (6)
  - COMPARTMENT SYNDROME [None]
  - HAEMATOMA [None]
  - INCORRECT DOSE ADMINISTERED [None]
  - MOVEMENT DISORDER [None]
  - OFF LABEL USE [None]
  - PAIN IN EXTREMITY [None]
